FAERS Safety Report 4353417-8 (Version None)
Quarter: 2004Q2

REPORT INFORMATION
  Report Type: 
  Country: None (occurrence: None)
  Receive Date: 20040504
  Receipt Date: 20040504
  Transmission Date: 20050107
  Serious: Yes (Other)
  Sender: FDA-Public Use
  Company Number: None

PATIENT
  Age: 58 Year
  Sex: Female
  Weight: 72.5755 kg

DRUGS (1)
  1. ADVAIR DISKUS 100/50 [Suspect]
     Indication: ASTHMA
     Dosage: 2 TIMES TWO PUFFS
     Dates: start: 20040120, end: 20040501

REACTIONS (2)
  - BLOOD POTASSIUM DECREASED [None]
  - MUSCLE CRAMP [None]
